FAERS Safety Report 4301525-X (Version None)
Quarter: 2004Q1

REPORT INFORMATION
  Report Type: 
  Country: None (occurrence: None)
  Receive Date: 20040219
  Receipt Date: 20040211
  Transmission Date: 20041129
  Serious: Yes (Other)
  Sender: FDA-Public Use
  Company Number: S04-USA-00563-01

PATIENT
  Sex: Male

DRUGS (2)
  1. NAMENDA [Suspect]
     Dosage: 2 TABLET QD PO
     Route: 048
  2. NAMENDA [Suspect]
     Dates: start: 20040101

REACTIONS (2)
  - ABASIA [None]
  - CONFUSIONAL STATE [None]
